FAERS Safety Report 7736842-4 (Version None)
Quarter: 2011Q3

REPORT INFORMATION
  Report Type: 
  Country: None (occurrence: None)
  Receive Date: 20110908
  Receipt Date: 20110908
  Transmission Date: 20111222
  Serious: Yes (Other)
  Sender: FDA-Public Use
  Company Number: None

PATIENT
  Age: 43 Year
  Sex: Female
  Weight: 130 kg

DRUGS (1)
  1. REMICADE [Suspect]
     Indication: PSORIATIC ARTHROPATHY
     Dosage: 700MG
     Route: 041
     Dates: start: 20110726, end: 20110809

REACTIONS (6)
  - OBSESSIVE THOUGHTS [None]
  - DRUG INEFFECTIVE [None]
  - SUICIDAL IDEATION [None]
  - DIARRHOEA [None]
  - NAUSEA [None]
  - ABDOMINAL PAIN [None]
